FAERS Safety Report 9513319 (Version 1)
Quarter: 2013Q1

REPORT INFORMATION
  Report Type: Spontaneous
  Country: US (occurrence: None)
  Receive Date: 20130305
  Receipt Date: 20130305
  Transmission Date: 20140127
  Serious: Yes (Disabling, Other)
  Sender: FDA-Public Use
  Company Number: 163-21880-12021771

PATIENT
  Age: 79 Year
  Sex: Female

DRUGS (3)
  1. REVLIMID [Suspect]
     Indication: PLASMA CELL MYELOMA
     Route: 048
     Dates: start: 20110526, end: 20120215
  2. REVLIMID [Suspect]
     Route: 048
     Dates: start: 20110526, end: 20120215
  3. ALEVE (NAPROXEN SODIUM) [Concomitant]

REACTIONS (2)
  - Pancytopenia [None]
  - Disease progression [None]
